FAERS Safety Report 15849820 (Version 2)
Quarter: 2021Q1

REPORT INFORMATION
  Report Type: Spontaneous
  Country: SC (occurrence: SC)
  Receive Date: 20190121
  Receipt Date: 20210215
  Transmission Date: 20210419
  Serious: Yes (Death)
  Sender: FDA-Public Use
  Company Number: PHHY2019SC011894

PATIENT
  Sex: Male

DRUGS (1)
  1. GLIVEC [Suspect]
     Active Substance: IMATINIB MESYLATE
     Indication: CHRONIC MYELOID LEUKAEMIA
     Dosage: 400 MG (4 X 100MG), UNK
     Route: 065

REACTIONS (5)
  - Dyspnoea [Fatal]
  - Abscess limb [Fatal]
  - Pneumonia [Fatal]
  - Sepsis [Fatal]
  - Pulmonary embolism [Fatal]
